FAERS Safety Report 8536183-1 (Version None)
Quarter: 2012Q3

REPORT INFORMATION
  Report Type: 
  Country: None (occurrence: None)
  Receive Date: 20120725
  Receipt Date: 20120717
  Transmission Date: 20120928
  Serious: Yes (Hospitalization, Other)
  Sender: FDA-Public Use
  Company Number: US-GENZYME-CERZ-1002561

PATIENT
  Sex: Male

DRUGS (1)
  1. CEREZYME [Suspect]
     Indication: GAUCHER'S DISEASE
     Dosage: 60 U/KG, UNK
     Route: 042
     Dates: end: 20090101

REACTIONS (3)
  - VITAMIN B12 DEFICIENCY [None]
  - ACQUIRED IMMUNODEFICIENCY SYNDROME [None]
  - TREPONEMA TEST POSITIVE [None]
